FAERS Safety Report 20692635 (Version 4)
Quarter: 2022Q2

REPORT INFORMATION
  Report Type: Other
  Country: US (occurrence: None)
  Receive Date: 20220409
  Receipt Date: 20220429
  Transmission Date: 20220721
  Serious: No
  Sender: FDA-Public Use
  Company Number: US-ROCHE-3071383

PATIENT
  Age: 31 Year
  Sex: Male

DRUGS (2)
  1. OCREVUS [Suspect]
     Active Substance: OCRELIZUMAB
     Indication: Multiple sclerosis
     Dosage: INITIALLY: 300 MG: IV X 2; SEPARATED BY 2 WEEKS. DATE OF TREATMENT: 28/JUN/2021, 07/DEC/2020, 12/JUN
     Route: 042
  2. COVID-19 VACCINE [Concomitant]

REACTIONS (1)
  - COVID-19 [Not Recovered/Not Resolved]

NARRATIVE: CASE EVENT DATE: 20220404
